FAERS Safety Report 7653407-3 (Version None)
Quarter: 2011Q3

REPORT INFORMATION
  Report Type: 
  Country: None (occurrence: None)
  Receive Date: 20110803
  Receipt Date: 20110728
  Transmission Date: 20111222
  Serious: No
  Sender: FDA-Public Use
  Company Number: US-PFIZER INC-2011172737

PATIENT
  Sex: Female
  Weight: 72.562 kg

DRUGS (1)
  1. CELEBREX [Suspect]
     Indication: ROTATOR CUFF SYNDROME
     Dosage: 200 MG DAILY
     Dates: start: 20110701, end: 20110704

REACTIONS (3)
  - HEADACHE [None]
  - PALPITATIONS [None]
  - HEART RATE INCREASED [None]
